FAERS Safety Report 8280677-3 (Version None)
Quarter: 2012Q2

REPORT INFORMATION
  Report Type: 
  Country: None (occurrence: None)
  Receive Date: 20120412
  Receipt Date: 20110531
  Transmission Date: 20120825
  Serious: No
  Sender: FDA-Public Use
  Company Number: US-ASTRAZENECA-2011SE33443

PATIENT
  Sex: Female

DRUGS (1)
  1. NEXIUM [Suspect]
     Indication: DYSPEPSIA
     Route: 048

REACTIONS (5)
  - SPEECH DISORDER [None]
  - DISCOMFORT [None]
  - DRUG DOSE OMISSION [None]
  - DYSPEPSIA [None]
  - CRYING [None]
